FAERS Safety Report 9079699 (Version 1)
Quarter: 2013Q1

REPORT INFORMATION
  Report Type: Report from Study
  Country: US (occurrence: US)
  Receive Date: 20130130
  Receipt Date: 20130130
  Transmission Date: 20140127
  Serious: No
  Sender: FDA-Public Use
  Company Number: US-ABBOTT-12P-163-0975354-00

PATIENT
  Age: 44 Year
  Sex: Female

DRUGS (5)
  1. HUMIRA [Suspect]
     Indication: CROHN^S DISEASE
     Dosage: LOADING DOSE
     Route: 058
     Dates: start: 20120822
  2. PRILOSEC [Concomitant]
     Indication: ULCER
  3. CLARITIN [Concomitant]
     Indication: HYPERSENSITIVITY
  4. VERAPAMIL [Concomitant]
     Indication: SUPRAVENTRICULAR TACHYCARDIA
  5. PAROXETINE [Concomitant]
     Indication: ANXIETY DISORDER

REACTIONS (2)
  - Injection site pain [Recovered/Resolved]
  - Pain in extremity [Recovered/Resolved]
